FAERS Safety Report 7310916-4 (Version None)
Quarter: 2011Q1

REPORT INFORMATION
  Report Type: 
  Country: None (occurrence: None)
  Receive Date: 20110224
  Receipt Date: 20110216
  Transmission Date: 20110831
  Serious: Yes (Other)
  Sender: FDA-Public Use
  Company Number: US-JNJFOC-20100804622

PATIENT

DRUGS (4)
  1. SYNTHROID [Concomitant]
     Indication: HYPOTHYROIDISM
     Route: 065
  2. LEVAQUIN [Suspect]
     Indication: URINARY TRACT INFECTION
     Route: 048
  3. METHYLPREDNISOLONE [Suspect]
     Indication: INFLAMMATION
     Route: 065
  4. PREMARIN [Concomitant]
     Indication: OESTROGEN THERAPY
     Route: 065

REACTIONS (3)
  - BURSITIS [None]
  - TENDON RUPTURE [None]
  - LIMB INJURY [None]
